FAERS Safety Report 13517135 (Version 1)
Quarter: 2017Q2

REPORT INFORMATION
  Report Type: Spontaneous
  Country: US (occurrence: US)
  Receive Date: 20170505
  Receipt Date: 20170505
  Transmission Date: 20170830
  Serious: Yes (Hospitalization)
  Sender: FDA-Public Use
  Company Number: None

PATIENT
  Age: 88 Year
  Sex: Male
  Weight: 64.2 kg

DRUGS (4)
  1. ASA [Suspect]
     Active Substance: ASPIRIN
     Indication: ROTATOR CUFF SYNDROME
     Dosage: DATES OF USE - RECENT
     Route: 048
  2. VOLTAREN [Concomitant]
     Active Substance: DICLOFENAC SODIUM
  3. NAPROSYN [Suspect]
     Active Substance: NAPROXEN
     Indication: ROTATOR CUFF SYNDROME
     Dosage: DATES OF USE - RECENT
     Route: 048
  4. NORCO [Concomitant]
     Active Substance: ACETAMINOPHEN\HYDROCODONE BITARTRATE

REACTIONS (2)
  - Upper gastrointestinal haemorrhage [None]
  - Gastric ulcer [None]

NARRATIVE: CASE EVENT DATE: 20170101
